FAERS Safety Report 24235957 (Version 1)
Quarter: 2024Q3

REPORT INFORMATION
  Report Type: Spontaneous
  Country: US (occurrence: US)
  Receive Date: 20240822
  Receipt Date: 20240822
  Transmission Date: 20241016
  Serious: No
  Sender: ENDO
  Company Number: US-ENDO PHARMACEUTICALS INC-2024-001457

PATIENT
  Age: 43 Year
  Sex: Male

DRUGS (3)
  1. TESTOPEL [Suspect]
     Active Substance: TESTOSTERONE
     Indication: Blood testosterone decreased
     Dosage: UNK UNKNOWN, UNKNOWN
     Route: 065
     Dates: start: 202304, end: 202310
  2. TESTOPEL [Suspect]
     Active Substance: TESTOSTERONE
     Indication: Blood testosterone decreased
     Dosage: UNK UNKNOWN, UNKNOWN
     Route: 065
     Dates: start: 202304, end: 202310
  3. TESTOPEL [Suspect]
     Active Substance: TESTOSTERONE
     Indication: Blood testosterone decreased
     Dosage: UNK UNKNOWN, UNKNOWN
     Route: 065
     Dates: start: 202304, end: 202310

REACTIONS (3)
  - Blood testosterone abnormal [Unknown]
  - Cough [Unknown]
  - Therapeutic product effect variable [Unknown]

NARRATIVE: CASE EVENT DATE: 20230401
